FAERS Safety Report 5227796-3 (Version None)
Quarter: 2007Q1

REPORT INFORMATION
  Report Type: 
  Country: None (occurrence: None)
  Receive Date: 20070202
  Receipt Date: 20070124
  Transmission Date: 20070707
  Serious: Yes (Hospitalization)
  Sender: FDA-Public Use
  Company Number: DE-PFIZER INC-2007007139

PATIENT
  Sex: Female
  Weight: 68 kg

DRUGS (5)
  1. EXEMESTANE [Suspect]
     Indication: BREAST CANCER
     Route: 048
  2. BISOMERCK [Concomitant]
     Route: 048
  3. ATACAND [Concomitant]
     Dates: start: 20051201
  4. ZOPICLONE [Concomitant]
     Route: 048
     Dates: start: 20060401
  5. IBUPROFEN [Concomitant]
     Route: 048
     Dates: start: 20050113

REACTIONS (1)
  - VULVAL CANCER STAGE 0 [None]
